FAERS Safety Report 8503568-9 (Version None)
Quarter: 2012Q3

REPORT INFORMATION
  Report Type: 
  Country: None (occurrence: None)
  Receive Date: 20120711
  Receipt Date: 20120704
  Transmission Date: 20120928
  Serious: Yes (Death)
  Sender: FDA-Public Use
  Company Number: PE-PFIZER INC-2012132392

PATIENT
  Age: 66 Year
  Sex: Female

DRUGS (1)
  1. ECALTA [Suspect]
     Dosage: 100 MG, 1X/DAY
     Route: 042
     Dates: start: 20120501

REACTIONS (1)
  - RESPIRATORY ARREST [None]
